FAERS Safety Report 7200717-X (Version None)
Quarter: 2010Q4

REPORT INFORMATION
  Report Type: 
  Country: None (occurrence: None)
  Receive Date: 20101228
  Receipt Date: 20101226
  Transmission Date: 20110411
  Serious: Yes (Other)
  Sender: FDA-Public Use
  Company Number: US-PFIZER INC-2010126357

PATIENT
  Sex: Female
  Weight: 73 kg

DRUGS (8)
  1. GEODON [Suspect]
     Indication: BIPOLAR DISORDER
     Dosage: 60 MG, 1X/DAY
     Route: 048
  2. CHANTIX [Suspect]
     Indication: SMOKING CESSATION THERAPY
     Dosage: 0.5 MG DAILY
     Route: 048
     Dates: start: 20101218
  3. CHANTIX [Suspect]
     Dosage: 1.0 MG, 2X/DAY
     Route: 048
  4. MORPHINE [Concomitant]
     Indication: BACK DISORDER
     Dosage: 240 MG DAILY
  5. SOMA [Concomitant]
     Indication: BACK DISORDER
     Dosage: 700 MG DAILY
  6. CYMBALTA [Concomitant]
     Indication: DEPRESSION
     Dosage: 60 MG, 1X/DAY
  7. RITALIN [Concomitant]
     Indication: ATTENTION DEFICIT/HYPERACTIVITY DISORDER
     Dosage: 20 MG, 1X/DAY
  8. KLONOPIN [Concomitant]
     Indication: ANXIETY
     Dosage: 3 MG, 1X/DAY

REACTIONS (5)
  - BRUXISM [None]
  - DYSGEUSIA [None]
  - PAIN [None]
  - PNEUMONIA [None]
  - SKIN PAPILLOMA [None]
